FAERS Safety Report 5442666-3 (Version None)
Quarter: 2007Q3

REPORT INFORMATION
  Report Type: 
  Country: None (occurrence: None)
  Receive Date: 20070830
  Receipt Date: 20070820
  Transmission Date: 20080115
  Serious: Yes (Hospitalization, Other)
  Sender: FDA-Public Use
  Company Number: 07H-163-0313098-00

PATIENT
  Age: 59 Year
  Sex: Female

DRUGS (1)
  1. HEPARIN SODIUM INJECTION [Suspect]
     Indication: HAEMODIALYSIS

REACTIONS (4)
  - GENERAL PHYSICAL HEALTH DETERIORATION [None]
  - HEPARIN-INDUCED THROMBOCYTOPENIA [None]
  - SUBARACHNOID HAEMORRHAGE [None]
  - SUPERIOR SAGITTAL SINUS THROMBOSIS [None]
